FAERS Safety Report 23328939 (Version 1)
Quarter: 2023Q4

REPORT INFORMATION
  Report Type: Spontaneous
  Country: GB (occurrence: GB)
  Receive Date: 20231222
  Receipt Date: 20231222
  Transmission Date: 20240110
  Serious: Yes (Other)
  Sender: FDA-Public Use
  Company Number: None

PATIENT
  Age: 69 Year
  Sex: Male
  Weight: 71 kg

DRUGS (20)
  1. EMPAGLIFLOZIN [Suspect]
     Active Substance: EMPAGLIFLOZIN
     Indication: Product used for unknown indication
     Dates: start: 20220922
  2. ASACOL [Concomitant]
     Active Substance: MESALAMINE
     Indication: Product used for unknown indication
     Dosage: 2 DOSAGE FORM
     Dates: start: 20220922
  3. LANOLIN\LIGHT MINERAL OIL\PARAFFIN [Concomitant]
     Active Substance: LANOLIN\LIGHT MINERAL OIL\PARAFFIN
     Indication: Product used for unknown indication
     Dosage: AS DIRECTED
     Dates: start: 20220922
  4. LANTUS [Concomitant]
     Active Substance: INSULIN GLARGINE
     Indication: Product used for unknown indication
     Dosage: MORNING
     Dates: start: 20230502
  5. APIXABAN [Concomitant]
     Active Substance: APIXABAN
     Dosage: 1 DOSAGE FORM
     Dates: start: 20220922
  6. ATORVASTATIN [Concomitant]
     Active Substance: ATORVASTATIN
     Dosage: TO HELP LOWE...
     Dates: start: 20230920, end: 20231127
  7. BISOPROLOL [Concomitant]
     Active Substance: BISOPROLOL\BISOPROLOL FUMARATE
     Dosage: 1 DOSAGE FORM
     Dates: start: 20220922
  8. CLOPIDOGREL [Concomitant]
     Active Substance: CLOPIDOGREL BISULFATE
     Dosage: 1 DOSAGE FORM ?TO HELP PREVENT HEART ...
     Dates: start: 20230920
  9. CLOTRIMAZOLE [Concomitant]
     Active Substance: CLOTRIMAZOLE
     Dosage: USE AS REQUIRED
     Dates: start: 20220922
  10. FINASTERIDE [Concomitant]
     Active Substance: FINASTERIDE
     Dosage: 1 DOSAGE FORM
     Dates: start: 20220922
  11. GLICLAZIDE [Concomitant]
     Active Substance: GLICLAZIDE
     Dates: start: 20220922
  12. NITROGLYCERIN [Concomitant]
     Active Substance: NITROGLYCERIN
     Dosage: SPRAY ONE OR TWO DOSES AND THEN CL...
     Route: 060
     Dates: start: 20220922
  13. LANSOPRAZOLE [Concomitant]
     Active Substance: LANSOPRAZOLE
     Dosage: TO HELP PREVENT IND...
     Dates: start: 20230920
  14. MACROGOL COMPOUND [Concomitant]
     Dosage: CAN INCREASE TO 1BD
     Dates: start: 20220922
  15. METFORMIN [Concomitant]
     Active Substance: METFORMIN HYDROCHLORIDE
     Dates: start: 20220922
  16. OMEPRAZOLE [Concomitant]
     Active Substance: OMEPRAZOLE
     Dosage: OD
     Dates: start: 20220922, end: 20230920
  17. RAMIPRIL [Concomitant]
     Active Substance: RAMIPRIL
     Dates: start: 20220922
  18. SILDENAFIL [Concomitant]
     Active Substance: SILDENAFIL
     Dosage: AS DIRECTED
     Dates: start: 20220922
  19. SIMVASTATIN [Concomitant]
     Active Substance: SIMVASTATIN
     Dates: start: 20220922
  20. TAMSULOSIN HYDROCHLORIDE [Concomitant]
     Active Substance: TAMSULOSIN HYDROCHLORIDE
     Dosage: NIGHT
     Dates: start: 20220922

REACTIONS (3)
  - Liver function test abnormal [Recovering/Resolving]
  - Decreased appetite [Unknown]
  - Abnormal loss of weight [Unknown]
